FAERS Safety Report 14355887 (Version 1)
Quarter: 2018Q1

REPORT INFORMATION
  Report Type: Spontaneous
  Country: FR (occurrence: FR)
  Receive Date: 20180105
  Receipt Date: 20180105
  Transmission Date: 20180509
  Serious: Yes (Hospitalization)
  Sender: FDA-Public Use
  Company Number: FR-EMD SERONO-E2B_90005447

PATIENT
  Age: 27 Year
  Sex: Male

DRUGS (2)
  1. ANDROTARDYL [Suspect]
     Active Substance: TESTOSTERONE
     Indication: SECONDARY HYPOGONADISM
     Route: 030
     Dates: start: 2016
  2. GONAL-F [Suspect]
     Active Substance: FOLLITROPIN
     Indication: SECONDARY HYPOGONADISM
     Route: 058
     Dates: start: 2017

REACTIONS (1)
  - Cerebral infarction [Not Recovered/Not Resolved]

NARRATIVE: CASE EVENT DATE: 20171115
